FAERS Safety Report 9919074 (Version 1)
Quarter: 2014Q1

REPORT INFORMATION
  Report Type: Spontaneous
  Country: US (occurrence: US)
  Receive Date: 20140224
  Receipt Date: 20140224
  Transmission Date: 20141002
  Serious: No
  Sender: FDA-Public Use
  Company Number: US-PFIZER INC-2014052738

PATIENT
  Age: 61 Year
  Sex: Female
  Weight: 104.31 kg

DRUGS (4)
  1. GABAPENTIN [Suspect]
     Indication: FIBROMYALGIA
     Dosage: UNK
     Dates: start: 2013, end: 201401
  2. ATENOLOL [Concomitant]
     Indication: HYPERTENSION
     Dosage: UNK
  3. ZOLPIDEM [Concomitant]
     Indication: SLEEP DISORDER
     Dosage: UNK
  4. HYDROTHIAZIDE [Concomitant]
     Dosage: UNK

REACTIONS (2)
  - Off label use [Unknown]
  - Drug ineffective for unapproved indication [Unknown]
